FAERS Safety Report 5693036-4 (Version None)
Quarter: 2008Q2

REPORT INFORMATION
  Report Type: 
  Country: None (occurrence: None)
  Receive Date: 20080401
  Receipt Date: 20080401
  Transmission Date: 20081010
  Serious: No
  Sender: FDA-Public Use
  Company Number: None

PATIENT
  Age: 10 Year
  Sex: Female
  Weight: 27.6694 kg

DRUGS (1)
  1. SINGULAIR [Suspect]
     Indication: MULTIPLE ALLERGIES
     Dosage: 1 DAY

REACTIONS (8)
  - ABDOMINAL PAIN UPPER [None]
  - ANHEDONIA [None]
  - CRYING [None]
  - EDUCATIONAL PROBLEM [None]
  - FEAR [None]
  - HEADACHE [None]
  - MOOD ALTERED [None]
  - VISUAL DISTURBANCE [None]
